FAERS Safety Report 5714482-6 (Version None)
Quarter: 2008Q2

REPORT INFORMATION
  Report Type: 
  Country: None (occurrence: None)
  Receive Date: 20080423
  Receipt Date: 20080418
  Transmission Date: 20081010
  Serious: Yes (Other)
  Sender: FDA-Public Use
  Company Number: PHNU2008DE01566

PATIENT
  Age: 40 Year
  Sex: Male

DRUGS (3)
  1. CLOZAPINE [Suspect]
     Dosage: 50-0-125 MG
     Route: 048
  2. GLIANIMON [Concomitant]
     Dosage: 8 MG, TID
     Route: 048
  3. GLIANIMON [Concomitant]
     Dosage: 11 MG/DAY
     Route: 048

REACTIONS (2)
  - SLEEP DISORDER [None]
  - SUICIDAL IDEATION [None]
